FAERS Safety Report 25934283 (Version 1)
Quarter: 2025Q4

REPORT INFORMATION
  Report Type: Spontaneous
  Country: JP (occurrence: JP)
  Receive Date: 20251017
  Receipt Date: 20251017
  Transmission Date: 20260118
  Serious: Yes (Other)
  Sender: MERCK SHARP & DOHME LLC
  Company Number: JP-009507513-2340708

PATIENT
  Age: 76 Year
  Sex: Male

DRUGS (13)
  1. APREPITANT [Suspect]
     Active Substance: APREPITANT
     Indication: Prophylaxis of nausea and vomiting
     Route: 048
     Dates: start: 20250820
  2. SENNOSIDES A AND B [Concomitant]
     Active Substance: SENNOSIDES A AND B
  3. DECADRON [Concomitant]
     Active Substance: DEXAMETHASONE
  4. MARZULENE (Sodium gualenate) [Concomitant]
  5. LAC-B (Bifidobacterium lactis) [Concomitant]
  6. NEXIUM [Concomitant]
     Active Substance: ESOMEPRAZOLE MAGNESIUM
  7. DOMPERIDONE [Concomitant]
     Active Substance: DOMPERIDONE
  8. LIMAPROST [Suspect]
     Active Substance: LIMAPROST
     Indication: Product used for unknown indication
     Route: 048
  9. BEVACIZUMAB [Suspect]
     Active Substance: BEVACIZUMAB
     Dosage: DAILY DOSE: 240 MG
     Dates: start: 20250820
  10. OXALIPLATIN [Suspect]
     Active Substance: OXALIPLATIN
     Dosage: DAILY DOSE: 100 MG
     Dates: start: 20250820
  11. LEVOLEUCOVORIN CALCIUM [Suspect]
     Active Substance: LEVOLEUCOVORIN CALCIUM
     Dosage: DAILY DOSE: 250 MG
     Dates: start: 20250820
  12. FLUOROURACIL [Suspect]
     Active Substance: FLUOROURACIL
     Dosage: DAILY DOSE: 500 MG
     Route: 040
     Dates: start: 20250820
  13. FLUOROURACIL [Suspect]
     Active Substance: FLUOROURACIL
     Dosage: DAILY DOSE: 3000 MG
     Route: 041
     Dates: start: 20250820

REACTIONS (1)
  - Altered state of consciousness [Recovered/Resolved]

NARRATIVE: CASE EVENT DATE: 20250822
